FAERS Safety Report 4774467-3 (Version None)
Quarter: 2005Q3

REPORT INFORMATION
  Report Type: 
  Country: None (occurrence: None)
  Receive Date: 20050920
  Receipt Date: 20050920
  Transmission Date: 20060218
  Serious: Yes (Other)
  Sender: FDA-Public Use
  Company Number: None

PATIENT
  Age: 67 Year
  Sex: Female
  Weight: 63.5036 kg

DRUGS (14)
  1. TRILEPTAL [Suspect]
     Indication: BIPOLAR DISORDER
     Dosage: SEE IMAGE
     Dates: start: 20050713, end: 20050801
  2. TRILEPTAL [Suspect]
     Indication: SCHIZOAFFECTIVE DISORDER
     Dosage: SEE IMAGE
     Dates: start: 20050713, end: 20050801
  3. CALCIUM GLUCONATE [Concomitant]
  4. SYNTHROID [Concomitant]
  5. BENZTROPINE [Concomitant]
  6. INDERAL [Concomitant]
  7. TYLENOL (CAPLET) [Concomitant]
  8. HALOPERIDOL [Concomitant]
  9. HALDOL [Concomitant]
  10. ALUMINUM HYDROXIDE AND MAGNESIUM TRISILICATE [Concomitant]
  11. MILK OF MAGNESIA TAB [Concomitant]
  12. NIVEA CREME [Concomitant]
  13. MULTIVITAMINS+IRON+MINERALS [Concomitant]
  14. CARMEX [Concomitant]

REACTIONS (1)
  - CHOREOATHETOSIS [None]
